FAERS Safety Report 23786670 (Version 3)
Quarter: 2024Q2

REPORT INFORMATION
  Report Type: Report from Study
  Country: US (occurrence: US)
  Receive Date: 20240426
  Receipt Date: 20240604
  Transmission Date: 20240716
  Serious: Yes (Other)
  Sender: FDA-Public Use
  Company Number: US-ARGENX-2024-ARGX-US002351

PATIENT

DRUGS (3)
  1. VYVGART HYTRULO [Suspect]
     Active Substance: EFGARTIGIMOD ALFA\HYALURONIDASE-QVFC
     Indication: Myasthenia gravis
     Dosage: 1008 MG, 1/WEEK
     Route: 058
     Dates: start: 202311
  2. VYVGART HYTRULO [Suspect]
     Active Substance: EFGARTIGIMOD ALFA\HYALURONIDASE-QVFC
     Dosage: 1008 MG, 1/WEEK FOR 4 WEEKS, 11200 UNITS
     Route: 058
     Dates: start: 20231201
  3. MESTINON [Concomitant]
     Active Substance: PYRIDOSTIGMINE BROMIDE
     Indication: Product used for unknown indication
     Dosage: 10 MESTINON A DAY
     Route: 065

REACTIONS (19)
  - Myasthenia gravis [Unknown]
  - Fall [Unknown]
  - Contusion [Unknown]
  - Balance disorder [Unknown]
  - Fall [Unknown]
  - Head injury [Unknown]
  - Joint injury [Unknown]
  - Limb injury [Unknown]
  - Post-traumatic pain [Unknown]
  - Blood pressure increased [Unknown]
  - Headache [Unknown]
  - Oxygen saturation decreased [Unknown]
  - Fall [Unknown]
  - Drug effect less than expected [Unknown]
  - Somnolence [Unknown]
  - Dizziness [Unknown]
  - Gait disturbance [Unknown]
  - Insomnia [Unknown]
  - Dry mouth [Unknown]

NARRATIVE: CASE EVENT DATE: 20240401
